FAERS Safety Report 20572686 (Version 1)
Quarter: 2022Q1

REPORT INFORMATION
  Report Type: Spontaneous
  Country: US (occurrence: None)
  Receive Date: 20220309
  Receipt Date: 20220309
  Transmission Date: 20220423
  Serious: Yes (Hospitalization)
  Sender: FDA-Public Use
  Company Number: None

PATIENT
  Age: 48 Year
  Sex: Male
  Weight: 105 kg

DRUGS (4)
  1. CISPLATIN [Suspect]
     Active Substance: CISPLATIN
     Dates: end: 20190714
  2. FILGRASTIM [Suspect]
     Active Substance: FILGRASTIM
     Dates: end: 20190724
  3. IFOSFAMIDE [Suspect]
     Active Substance: IFOSFAMIDE
     Dates: end: 20190714
  4. TAXOL [Suspect]
     Active Substance: PACLITAXEL
     Dates: end: 20190710

REACTIONS (8)
  - Escherichia infection [None]
  - Phlebitis [None]
  - Vascular access site complication [None]
  - Vascular complication associated with device [None]
  - Thrombocytopenia [None]
  - Deep vein thrombosis [None]
  - Platelet transfusion [None]
  - Packed red blood cell transfusion [None]

NARRATIVE: CASE EVENT DATE: 20220101
